FAERS Safety Report 16091269 (Version 1)
Quarter: 2019Q1

REPORT INFORMATION
  Report Type: Spontaneous
  Country: US (occurrence: US)
  Receive Date: 20190319
  Receipt Date: 20190319
  Transmission Date: 20190418
  Serious: No
  Sender: FDA-Public Use
  Company Number: US-GLAXOSMITHKLINE-US2019GSK039950

PATIENT
  Sex: Male

DRUGS (2)
  1. VENTOLIN [Suspect]
     Active Substance: ALBUTEROL SULFATE
     Indication: PRODUCT USED FOR UNKNOWN INDICATION
     Dosage: 90UG
     Route: 055
     Dates: start: 2017
  2. ASMANEX [Suspect]
     Active Substance: MOMETASONE FUROATE

REACTIONS (3)
  - Ill-defined disorder [Unknown]
  - Condition aggravated [Unknown]
  - Intentional overdose [Unknown]
